FAERS Safety Report 18088818 (Version 5)
Quarter: 2020Q3

REPORT INFORMATION
  Report Type: Spontaneous
  Country: US (occurrence: US)
  Receive Date: 20200729
  Receipt Date: 20200905
  Transmission Date: 20201103
  Serious: Yes (Death, Hospitalization, Other)
  Sender: FDA-Public Use
  Company Number: US-AMGEN-USASP2020119840

PATIENT
  Age: 81 Year
  Sex: Male

DRUGS (5)
  1. DOXORUBICIN [Concomitant]
     Active Substance: DOXORUBICIN
     Indication: HODGKIN^S DISEASE
  2. BLEOMYCIN [Concomitant]
     Active Substance: BLEOMYCIN SULFATE
     Indication: HODGKIN^S DISEASE
  3. VINBLASTINE [Concomitant]
     Active Substance: VINBLASTINE
     Indication: HODGKIN^S DISEASE
  4. NEULASTA [Suspect]
     Active Substance: PEGFILGRASTIM
     Indication: NEUTROPENIA
     Dosage: UNK
     Route: 065
  5. DACARBAZINE. [Concomitant]
     Active Substance: DACARBAZINE
     Indication: HODGKIN^S DISEASE

REACTIONS (2)
  - Hospitalisation [Unknown]
  - Death [Fatal]
